FAERS Safety Report 10100489 (Version 2)
Quarter: 2014Q2

REPORT INFORMATION
  Report Type: Spontaneous
  Country: JP (occurrence: JP)
  Receive Date: 20140423
  Receipt Date: 20140423
  Transmission Date: 20141212
  Serious: Yes (Hospitalization)
  Sender: FDA-Public Use
  Company Number: PHHY2014JP041496

PATIENT
  Age: 81 Year
  Sex: Female

DRUGS (2)
  1. EXELON PATCH [Suspect]
     Indication: DEMENTIA ALZHEIMER^S TYPE
     Dosage: 4.5 MG, DAILY
     Route: 062
  2. EXELON PATCH [Suspect]
     Dosage: 13.5 MG DAILY
     Route: 062
     Dates: end: 20140307

REACTIONS (6)
  - Radius fracture [Unknown]
  - Fall [Unknown]
  - Dermatitis contact [Unknown]
  - Pruritus [Unknown]
  - Erythema [Recovered/Resolved]
  - Drug ineffective [Unknown]
